FAERS Safety Report 18643885 (Version 1)
Quarter: 2020Q4

REPORT INFORMATION
  Report Type: Spontaneous
  Country: US (occurrence: US)
  Receive Date: 20201221
  Receipt Date: 20201221
  Transmission Date: 20210114
  Serious: No
  Sender: FDA-Public Use
  Company Number: None

PATIENT
  Age: 38 Year
  Sex: Female
  Weight: 78.75 kg

DRUGS (2)
  1. NUVARING [Concomitant]
     Active Substance: ETHINYL ESTRADIOL\ETONOGESTREL
  2. ELURYNG [Suspect]
     Active Substance: ETHINYL ESTRADIOL\ETONOGESTREL
     Indication: MENORRHAGIA
     Dates: start: 20200402, end: 20201201

REACTIONS (7)
  - Emotional disorder [None]
  - Impaired driving ability [None]
  - Product substitution issue [None]
  - Metrorrhagia [None]
  - Gait inability [None]
  - Abdominal pain [None]
  - Headache [None]

NARRATIVE: CASE EVENT DATE: 20200414
